FAERS Safety Report 11085926 (Version 2)
Quarter: 2015Q2

REPORT INFORMATION
  Report Type: Spontaneous
  Country: US (occurrence: US)
  Receive Date: 20150503
  Receipt Date: 20150525
  Transmission Date: 20150821
  Serious: No
  Sender: FDA-Public Use
  Company Number: US-JNJFOC-20121001438

PATIENT
  Age: 39 Year
  Sex: Female
  Weight: 73 kg

DRUGS (2)
  1. ORTHO TRI CYCLEN [Suspect]
     Active Substance: ETHINYL ESTRADIOL\NORGESTIMATE
     Indication: CONTRACEPTION
     Route: 048
     Dates: start: 2010
  2. NEXT CHOICE [Suspect]
     Active Substance: LEVONORGESTREL
     Indication: POST COITAL CONTRACEPTION
     Dosage: 1 TABLET WITHIN 72 HOURS
     Route: 048
     Dates: start: 20120917, end: 20120917

REACTIONS (3)
  - Menstruation delayed [Not Recovered/Not Resolved]
  - Wrong technique in drug usage process [Unknown]
  - Drug dose omission [Unknown]

NARRATIVE: CASE EVENT DATE: 201209
